FAERS Safety Report 15160189 (Version 1)
Quarter: 2018Q3

REPORT INFORMATION
  Report Type: Spontaneous
  Country: PT (occurrence: PT)
  Receive Date: 20180718
  Receipt Date: 20180718
  Transmission Date: 20181010
  Serious: Yes (Other)
  Sender: FDA-Public Use
  Company Number: PT-009507513-1807PRT006920

PATIENT
  Age: 65 Year
  Sex: Female

DRUGS (4)
  1. FOSAVANCE [Suspect]
     Active Substance: ALENDRONATE SODIUM\CHOLECALCIFEROL
     Indication: OSTEOPOROSIS
     Dosage: 1 TABLET PER WEEK
     Route: 048
     Dates: start: 20180626
  2. ANSILOR [Concomitant]
     Dosage: UNK
  3. ATORVASTATIN CALCIUM. [Concomitant]
     Active Substance: ATORVASTATIN CALCIUM
     Dosage: UNK
  4. CALCIORAL [Concomitant]
     Dosage: UNK

REACTIONS (6)
  - Headache [Unknown]
  - Pyrexia [Recovered/Resolved]
  - Face oedema [Recovering/Resolving]
  - Myalgia [Recovering/Resolving]
  - Periorbital oedema [Recovering/Resolving]
  - Rash [Recovering/Resolving]

NARRATIVE: CASE EVENT DATE: 20180626
